FAERS Safety Report 6431591-7 (Version None)
Quarter: 2009Q4

REPORT INFORMATION
  Report Type: 
  Country: None (occurrence: None)
  Receive Date: 20091106
  Receipt Date: 20091028
  Transmission Date: 20100525
  Serious: Yes (Life-Threatening, Hospitalization)
  Sender: FDA-Public Use
  Company Number: CH-AMGEN-US372391

PATIENT
  Sex: Female

DRUGS (2)
  1. ENBREL [Suspect]
     Indication: RHEUMATOID ARTHRITIS
     Route: 065
     Dates: start: 20090901, end: 20090907
  2. LEFLUNOMIDE [Concomitant]
     Dosage: UNKNOWN
     Route: 048
     Dates: start: 20080415

REACTIONS (3)
  - CHOLANGITIS [None]
  - CHOLECYSTITIS INFECTIVE [None]
  - PANCREATITIS [None]
